FAERS Safety Report 8099338-9 (Version None)
Quarter: 2012Q1

REPORT INFORMATION
  Report Type: 
  Country: None (occurrence: None)
  Receive Date: 20120126
  Receipt Date: 20120113
  Transmission Date: 20120608
  Serious: Yes (Congenital Anomaly)
  Sender: FDA-Public Use
  Company Number: 1000027332

PATIENT

DRUGS (1)
  1. CELEXA [Suspect]
     Dosage: 30 MG (30 MG, 1 IN 1 D) TRANSPLACENTAL
     Route: 064

REACTIONS (2)
  - MATERNAL DRUGS AFFECTING FOETUS [None]
  - TALIPES [None]
